FAERS Safety Report 6753340-5 (Version None)
Quarter: 2010Q2

REPORT INFORMATION
  Report Type: 
  Country: None (occurrence: None)
  Receive Date: 20100603
  Receipt Date: 20100521
  Transmission Date: 20101027
  Serious: Yes (Hospitalization, Other)
  Sender: FDA-Public Use
  Company Number: ES-ELI_LILLY_AND_COMPANY-ES201005006700

PATIENT
  Sex: Female
  Weight: 105 kg

DRUGS (10)
  1. FORTEO [Suspect]
     Indication: OSTEOPOROSIS
     Dosage: 20 UG, DAILY (1/D)
     Route: 058
     Dates: start: 20091201
  2. HEPARINA [Concomitant]
     Dosage: 1 D/F, DAILY (1/D)
     Route: 058
     Dates: start: 20100101
  3. STALEVO 100 [Concomitant]
     Indication: PARKINSON'S DISEASE
     Dosage: UNK, 3/D
     Route: 048
  4. ACABEL [Concomitant]
     Indication: PRURITUS
     Dosage: UNK, 2/D
     Route: 048
     Dates: start: 20090501
  5. TRIMETAZIDINA [Concomitant]
     Dosage: UNK, 2/D
     Route: 048
  6. PARACETAMOL [Concomitant]
     Dosage: UNK, UNKNOWN
     Route: 048
  7. EMPORTAL [Concomitant]
     Indication: ABDOMINAL DISCOMFORT
     Dosage: UNK, 2 SACHETS A DAY
     Route: 065
  8. PANTOPRAZOLE SODIUM [Concomitant]
     Indication: ABDOMINAL DISCOMFORT
     Dosage: UNK, UNKNOWN
     Route: 048
  9. SINVASTATINA [Concomitant]
     Indication: BLOOD CHOLESTEROL INCREASED
     Dosage: 1 D/F, DAILY (1/D)
     Route: 048
  10. LORMETAZEPAM [Concomitant]
     Indication: INSOMNIA
     Dosage: 1 D/F, DAILY (1/D)
     Route: 048

REACTIONS (1)
  - PATHOLOGICAL FRACTURE [None]
